FAERS Safety Report 7213050-7 (Version None)
Quarter: 2011Q1

REPORT INFORMATION
  Report Type: 
  Country: None (occurrence: None)
  Receive Date: 20110106
  Receipt Date: 20101228
  Transmission Date: 20110831
  Serious: Yes (Hospitalization)
  Sender: FDA-Public Use
  Company Number: B0691287A

PATIENT
  Sex: Male
  Weight: 55 kg

DRUGS (30)
  1. NEUTROGIN [Concomitant]
     Dates: start: 20100916, end: 20101020
  2. ZOVIRAX [Concomitant]
     Dosage: 1000MG PER DAY
     Route: 048
     Dates: start: 20100903, end: 20100921
  3. CRAVIT [Concomitant]
     Dosage: 500MG PER DAY
     Route: 048
     Dates: start: 20100903, end: 20100917
  4. AZUNOL [Concomitant]
     Dosage: 10MG PER DAY
     Route: 048
     Dates: start: 20100917
  5. GANCICLOVIR [Concomitant]
     Dosage: 500MG PER DAY
     Route: 042
     Dates: start: 20101018, end: 20101102
  6. BAKTAR [Concomitant]
     Dosage: 1IUAX PER DAY
     Route: 048
     Dates: start: 20101126
  7. SEROTONE [Concomitant]
     Dosage: 10G PER DAY
     Route: 042
     Dates: start: 20100904, end: 20100908
  8. NEO-MINOPHAGEN-C [Concomitant]
     Dosage: 40ML PER DAY
     Route: 042
     Dates: start: 20100916, end: 20100924
  9. VALTREX [Concomitant]
     Dosage: 1000MG PER DAY
     Route: 048
     Dates: start: 20101111, end: 20101117
  10. MAXIPIME [Concomitant]
     Dosage: 4G PER DAY
     Route: 042
     Dates: start: 20100916, end: 20100921
  11. FUNGUARD [Concomitant]
     Dosage: 50MG PER DAY
     Route: 042
     Dates: start: 20100917, end: 20101020
  12. HUMULIN R [Concomitant]
     Dosage: 12IU PER DAY
     Dates: start: 20100928
  13. FUROSEMIDE [Concomitant]
     Dosage: 40MG PER DAY
     Route: 042
     Dates: start: 20100921, end: 20101011
  14. VICCLOX [Concomitant]
     Dosage: 200MG PER DAY
     Route: 042
     Dates: start: 20100922, end: 20100925
  15. ZOSYN [Concomitant]
     Dosage: 13.5G PER DAY
     Route: 042
     Dates: start: 20101013, end: 20101015
  16. TEICOPLANIN [Concomitant]
     Dosage: 400MG PER DAY
     Dates: start: 20101016, end: 20101025
  17. CLINDAMYCIN [Concomitant]
     Dosage: 1200MG PER DAY
     Route: 042
     Dates: start: 20101019, end: 20101025
  18. FLUDARA [Concomitant]
     Indication: ALLOGENIC BONE MARROW TRANSPLANTATION THERAPY
     Dosage: 38MGM2 PER DAY
     Route: 042
     Dates: start: 20100904, end: 20100908
  19. DEXALTIN [Concomitant]
     Dosage: 1G PER DAY
     Route: 048
     Dates: start: 20100915
  20. PREDONINE [Concomitant]
     Dosage: 60MG PER DAY
     Dates: start: 20100929, end: 20101020
  21. MEYLON [Concomitant]
     Dosage: 20ML PER DAY
     Route: 042
     Dates: start: 20100904, end: 20100908
  22. METHOTREXATE [Suspect]
     Indication: IMMUNOSUPPRESSION
     Dosage: 15MGK PER DAY
     Route: 042
     Dates: start: 20100911, end: 20100915
  23. DIFLUCAN [Concomitant]
     Dosage: 200MG PER DAY
     Route: 048
     Dates: start: 20100903, end: 20100917
  24. NORVASC [Concomitant]
     Dosage: 2.5MG PER DAY
     Route: 048
     Dates: start: 20101010, end: 20101105
  25. MORPHINE HYDROCHLORIDE [Concomitant]
     Dosage: 20MG PER DAY
     Dates: start: 20100920
  26. VFEND [Concomitant]
     Dosage: 300MG PER DAY
     Route: 042
     Dates: start: 20101114, end: 20101202
  27. ALKERAN [Suspect]
     Indication: ALLOGENIC BONE MARROW TRANSPLANTATION THERAPY
     Dosage: 100MGM2 PER DAY
     Route: 042
     Dates: start: 20100907, end: 20100908
  28. TACROLIMUS [Suspect]
     Indication: IMMUNOSUPPRESSION
     Dosage: .02MGK PER DAY
     Route: 042
     Dates: start: 20100909
  29. MEROPENEM [Concomitant]
     Dosage: 2MG PER DAY
     Route: 042
     Dates: start: 20100922, end: 20101004
  30. NITOROL [Concomitant]
     Route: 042
     Dates: start: 20100928, end: 20101006

REACTIONS (4)
  - GLOSSITIS [None]
  - HEPATIC FUNCTION ABNORMAL [None]
  - FEBRILE NEUTROPENIA [None]
  - RENAL FAILURE ACUTE [None]
